FAERS Safety Report 5239625-2 (Version None)
Quarter: 2007Q1

REPORT INFORMATION
  Report Type: 
  Country: None (occurrence: None)
  Receive Date: 20070216
  Receipt Date: 20070209
  Transmission Date: 20070707
  Serious: Yes (Hospitalization)
  Sender: FDA-Public Use
  Company Number: JP-JPN-A200700233

PATIENT
  Age: 67 Year
  Sex: Male
  Weight: 50 kg

DRUGS (12)
  1. VALTREX [Suspect]
     Indication: HERPES ZOSTER
     Dosage: 1000MG PER DAY
     Route: 048
     Dates: start: 20070112, end: 20070119
  2. ZYLORIC [Concomitant]
     Dosage: 100MG PER DAY
     Route: 048
  3. CALTAN [Concomitant]
     Dosage: 500MG THREE TIMES PER DAY
     Route: 048
     Dates: start: 20010301
  4. ROCALTROL [Concomitant]
     Indication: VITAMIN D DEFICIENCY
     Dosage: .25MCG PER DAY
     Route: 065
     Dates: start: 20010301
  5. FERRUM [Concomitant]
     Dosage: 305MG PER DAY
     Route: 048
  6. FUROSEMIDE [Concomitant]
     Dosage: 20MG TWICE PER DAY
     Route: 065
  7. EBRANTIL [Concomitant]
     Indication: HYPERTENSION
     Dosage: 15MG TWICE PER DAY
     Route: 048
  8. HYPEN [Concomitant]
     Dosage: 400MG PER DAY
     Route: 048
  9. LOXONIN [Concomitant]
     Route: 048
     Dates: start: 20070114
  10. TICLOPIDINE HCL [Concomitant]
     Indication: CEREBRAL INFARCTION
     Dosage: 100MG TWICE PER DAY
     Route: 048
  11. HORIZON [Concomitant]
     Indication: CONSTIPATION
     Dosage: 2MG THREE TIMES PER DAY
     Route: 065
  12. ALOSENN [Concomitant]
     Dosage: 1G THREE TIMES PER DAY
     Route: 048
     Dates: end: 20070118

REACTIONS (9)
  - ABNORMAL BEHAVIOUR [None]
  - ASTHENIA [None]
  - DEHYDRATION [None]
  - DEPRESSED LEVEL OF CONSCIOUSNESS [None]
  - DISORIENTATION [None]
  - EATING DISORDER [None]
  - HEADACHE [None]
  - PNEUMONIA [None]
  - SPEECH DISORDER [None]
